FAERS Safety Report 4999888-5 (Version None)
Quarter: 2006Q2

REPORT INFORMATION
  Report Type: 
  Country: None (occurrence: None)
  Receive Date: 20060509
  Receipt Date: 20060509
  Transmission Date: 20061013
  Serious: Yes (Other)
  Sender: FDA-Public Use
  Company Number: None

PATIENT
  Age: 38 Year
  Sex: Female
  Weight: 79.3795 kg

DRUGS (2)
  1. TRAMADOL HCL [Suspect]
     Indication: PAIN
     Dosage: 1 TABLET   4 TIMES PER DAY   PO
     Route: 048
     Dates: start: 20051130, end: 20051130
  2. CYCLOBENZAPRINE    10 MG     MCNEIL [Suspect]
     Indication: PAIN
     Dosage: 1 TABLET    3 TIMES PER DAY   PO
     Route: 048
     Dates: start: 20051130, end: 20051130

REACTIONS (15)
  - ANGLE CLOSURE GLAUCOMA [None]
  - DIZZINESS [None]
  - EYE DISORDER [None]
  - EYELID FUNCTION DISORDER [None]
  - HEADACHE [None]
  - INTRACRANIAL PRESSURE INCREASED [None]
  - MALAISE [None]
  - MYDRIASIS [None]
  - NAUSEA [None]
  - OPTIC NERVE DISORDER [None]
  - PAPILLOEDEMA [None]
  - VISION BLURRED [None]
  - VISUAL ACUITY REDUCED [None]
  - VISUAL DISTURBANCE [None]
  - VOMITING [None]
